FAERS Safety Report 18137669 (Version 4)
Quarter: 2021Q2

REPORT INFORMATION
  Report Type: Spontaneous
  Country: US (occurrence: US)
  Receive Date: 20200812
  Receipt Date: 20210603
  Transmission Date: 20210717
  Serious: No
  Sender: FDA-Public Use
  Company Number: US-SA-2020SA208898

PATIENT
  Age: 60 Year
  Sex: Female
  Weight: 99.77 kg

DRUGS (2)
  1. DUPIXENT [Suspect]
     Active Substance: DUPILUMAB
     Indication: DERMATITIS ATOPIC
     Dosage: 300 MG, QOW
     Route: 058
     Dates: start: 20200709
  2. DUPIXENT [Suspect]
     Active Substance: DUPILUMAB
     Indication: RASH

REACTIONS (20)
  - Cough [Unknown]
  - Hyperhidrosis [Unknown]
  - Dehydration [Unknown]
  - Eczema [Unknown]
  - Vision blurred [Unknown]
  - Skin haemorrhage [Unknown]
  - Pyrexia [Unknown]
  - Rash papular [Unknown]
  - Sleep disorder [Unknown]
  - Foreign body sensation in eyes [Unknown]
  - Rash [Recovered/Resolved]
  - Therapeutic response unexpected [Unknown]
  - Viral infection [Unknown]
  - Eye disorder [Unknown]
  - Lacrimation increased [Unknown]
  - Product use in unapproved indication [Unknown]
  - Urinary tract infection [Unknown]
  - Chills [Unknown]
  - Formication [Unknown]
  - Pruritus [Unknown]

NARRATIVE: CASE EVENT DATE: 2020
